FAERS Safety Report 25349776 (Version 2)
Quarter: 2025Q2

REPORT INFORMATION
  Report Type: Spontaneous
  Country: DK (occurrence: DK)
  Receive Date: 20250523
  Receipt Date: 20250527
  Transmission Date: 20250716
  Serious: Yes (Hospitalization, Other)
  Sender: Haleon PLC
  Company Number: DK-HALEON-2243364

PATIENT
  Age: 19 Year
  Sex: Male

DRUGS (4)
  1. IBUPROFEN [Suspect]
     Active Substance: IBUPROFEN
     Indication: Product used for unknown indication
     Route: 048
  2. RIFAMPIN [Suspect]
     Active Substance: RIFAMPIN
     Indication: Product used for unknown indication
     Route: 048
  3. ITRACONAZOLE [Suspect]
     Active Substance: ITRACONAZOLE
     Indication: Product used for unknown indication
     Route: 048
  4. FUSIDIC ACID [Suspect]
     Active Substance: FUSIDIC ACID
     Indication: Product used for unknown indication
     Route: 048

REACTIONS (2)
  - Suicide attempt [Unknown]
  - Vomiting [Unknown]
